FAERS Safety Report 21008339 (Version 2)
Quarter: 2022Q3

REPORT INFORMATION
  Report Type: Spontaneous
  Country: US (occurrence: US)
  Receive Date: 20220627
  Receipt Date: 20220705
  Transmission Date: 20221027
  Serious: No
  Sender: FDA-Public Use
  Company Number: US-ORGANON-O2206USA001957

PATIENT
  Sex: Male

DRUGS (5)
  1. ASMANEX [Suspect]
     Active Substance: MOMETASONE FUROATE
     Dosage: 1 INHALATION (DOSAGE FORM) ONCE DAILY OF 30 DOSE INHALER
     Dates: start: 20220615
  2. ASMANEX [Suspect]
     Active Substance: MOMETASONE FUROATE
     Dosage: 1 INHALATION (DOSAGE FORM) ONCE DAILY OF 30 DOSE INHALER
     Dates: start: 2021, end: 2021
  3. ASMANEX [Suspect]
     Active Substance: MOMETASONE FUROATE
     Dosage: 1 INHALATION (DOSAGE FORM) ONCE DAILY OF 30 DOSE INHALER
     Dates: start: 2021, end: 2021
  4. ASMANEX [Suspect]
     Active Substance: MOMETASONE FUROATE
     Dosage: 1 INHALATION (DOSAGE FORM) ONCE DAILY OF 30 DOSE INHALER
     Dates: start: 2021, end: 2021
  5. ASMANEX [Suspect]
     Active Substance: MOMETASONE FUROATE
     Dosage: 1 INHALATION (DOSAGE FORM) ONCE DAILY OF 30 DOSE INHALER
     Dates: start: 2021, end: 2021

REACTIONS (11)
  - Device malfunction [Unknown]
  - Poor quality device used [Unknown]
  - Device malfunction [Unknown]
  - Poor quality device used [Unknown]
  - Device malfunction [Unknown]
  - Poor quality device used [Unknown]
  - Device malfunction [Unknown]
  - Poor quality device used [Unknown]
  - Device malfunction [Unknown]
  - Poor quality device used [Unknown]
  - No adverse event [Unknown]

NARRATIVE: CASE EVENT DATE: 20210101
